FAERS Safety Report 19035977 (Version 1)
Quarter: 2021Q1

REPORT INFORMATION
  Report Type: Spontaneous
  Country: US (occurrence: US)
  Receive Date: 20210318
  Receipt Date: 20210318
  Transmission Date: 20210420
  Serious: Yes (Hospitalization)
  Sender: FDA-Public Use
  Company Number: None

PATIENT
  Sex: Female

DRUGS (3)
  1. VIGABATRIN POWDER @ 500MG PAR [Suspect]
     Active Substance: VIGABATRIN
     Indication: EPILEPSY
     Route: 048
     Dates: start: 202101
  2. VIGABATRIN POWDER @ 500MG PAR [Suspect]
     Active Substance: VIGABATRIN
     Indication: BRONCHOPULMONARY DYSPLASIA
     Route: 048
     Dates: start: 202101
  3. VIGABATRIN POWDER @ 500MG PAR [Suspect]
     Active Substance: VIGABATRIN
     Indication: PREMATURE BABY
     Route: 048
     Dates: start: 202101

REACTIONS (8)
  - Withdrawal syndrome [None]
  - Irritability [None]
  - Seizure [None]
  - Therapy interrupted [None]
  - Pyrexia [None]
  - Insurance issue [None]
  - Product distribution issue [None]
  - Hyperhidrosis [None]
